FAERS Safety Report 8770366 (Version 2)
Quarter: 2013Q1

REPORT INFORMATION
  Report Type: Spontaneous
  Country: US (occurrence: US)
  Receive Date: 20120906
  Receipt Date: 20130115
  Transmission Date: 20140127
  Serious: Yes (Other)
  Sender: FDA-Public Use
  Company Number: US-PERRIGO-12US007568

PATIENT
  Age: 60 Year
  Sex: Male
  Weight: 99.77 kg

DRUGS (3)
  1. FAMOTIDINE [Suspect]
     Indication: DYSPEPSIA
     Dosage: 1 TABLET, TWICE
     Route: 048
     Dates: start: 20120826, end: 20120826
  2. AMLOD [Concomitant]
     Indication: HYPERTENSION
     Dosage: UNK
     Route: 048
  3. ATORVA [Concomitant]
     Indication: HYPERTENSION
     Dosage: UNK
     Route: 048

REACTIONS (4)
  - Eye swelling [Recovered/Resolved]
  - Eye injury [Recovered/Resolved]
  - Vision blurred [Recovered/Resolved]
  - Hypersensitivity [Recovered/Resolved]
